FAERS Safety Report 12744017 (Version 1)
Quarter: 2016Q3

REPORT INFORMATION
  Report Type: Spontaneous
  Country: HR (occurrence: HR)
  Receive Date: 20160914
  Receipt Date: 20160914
  Transmission Date: 20161109
  Serious: Yes (Life-Threatening, Hospitalization, Other)
  Sender: FDA-Public Use
  Company Number: HR-ASTRAZENECA-2016SE96444

PATIENT
  Sex: Male

DRUGS (3)
  1. CERSON [Suspect]
     Active Substance: NITRAZEPAM
     Dosage: 3 TABLET
     Route: 048
     Dates: start: 2016
  2. APAURIN [Suspect]
     Active Substance: DIAZEPAM
     Dosage: 1.0DF UNKNOWN
     Route: 048
     Dates: start: 2016
  3. KVETIAPIN [Suspect]
     Active Substance: QUETIAPINE FUMARATE
     Route: 048
     Dates: start: 2016

REACTIONS (5)
  - Intentional overdose [Unknown]
  - Suicide attempt [Unknown]
  - Tachycardia [Unknown]
  - Seizure [Unknown]
  - Loss of consciousness [Unknown]

NARRATIVE: CASE EVENT DATE: 2016
